FAERS Safety Report 13545309 (Version 1)
Quarter: 2017Q2

REPORT INFORMATION
  Report Type: Spontaneous
  Country: US (occurrence: US)
  Receive Date: 20170513
  Receipt Date: 20170513
  Transmission Date: 20170830
  Serious: Yes (Other)
  Sender: FDA-Public Use
  Company Number: None

PATIENT
  Age: 60 Year
  Sex: Male
  Weight: 86.22 kg

DRUGS (12)
  1. LORAZEPAM. [Concomitant]
     Active Substance: LORAZEPAM
  2. OMEGA3 FISH OIL [Concomitant]
  3. ACERAMINOPHEN [Concomitant]
  4. AQUAPHOR HEALING [Suspect]
     Active Substance: PETROLATUM
     Indication: RASH
     Route: 061
  5. REVLIMID [Concomitant]
     Active Substance: LENALIDOMIDE
  6. OMEPRAZOLE. [Concomitant]
     Active Substance: OMEPRAZOLE
  7. VITAMIN D3 [Concomitant]
     Active Substance: CHOLECALCIFEROL
  8. AQUAPHOR HEALING [Suspect]
     Active Substance: PETROLATUM
     Indication: PURPURA
     Route: 061
  9. ADDERALL XR [Concomitant]
     Active Substance: AMPHETAMINE ASPARTATE\AMPHETAMINE SULFATE\DEXTROAMPHETAMINE SACCHARATE\DEXTROAMPHETAMINE SULFATE
  10. CENTRUM SILVER MULTIVITE FOR MEN [Concomitant]
  11. TRAZEDONE [Concomitant]
  12. CITALOPRAM [Concomitant]
     Active Substance: CITALOPRAM HYDROBROMIDE

REACTIONS (5)
  - Headache [None]
  - Sleep disorder due to general medical condition, insomnia type [None]
  - Pain [None]
  - Musculoskeletal pain [None]
  - Renal pain [None]

NARRATIVE: CASE EVENT DATE: 20170513
